FAERS Safety Report 20033439 (Version 2)
Quarter: 2021Q4

REPORT INFORMATION
  Report Type: Spontaneous
  Country: US (occurrence: US)
  Receive Date: 20211104
  Receipt Date: 20211129
  Transmission Date: 20220303
  Serious: Yes (Other)
  Sender: FDA-Public Use
  Company Number: US-BAYER-2021A236894

PATIENT
  Age: 21 Year
  Sex: Male

DRUGS (1)
  1. KOGENATE FS [Suspect]
     Active Substance: ANTIHEMOPHILIC FACTOR, HUMAN RECOMBINANT
     Indication: Haemorrhage prophylaxis
     Dosage: 2000 U EVERY 24 HOURS AS DIRECT TO PREVENT /CONTROL BLEEDING
     Route: 042

REACTIONS (4)
  - Thrombosis [None]
  - Skin discolouration [None]
  - Vascular device occlusion [None]
  - Catheter site scar [None]

NARRATIVE: CASE EVENT DATE: 20211017
